FAERS Safety Report 4653187-X (Version None)
Quarter: 2005Q2

REPORT INFORMATION
  Report Type: 
  Country: None (occurrence: None)
  Receive Date: 20050503
  Receipt Date: 20050328
  Transmission Date: 20051028
  Serious: Yes (Hospitalization, Disabling)
  Sender: FDA-Public Use
  Company Number: A01200501908

PATIENT
  Age: 86 Year
  Sex: Female

DRUGS (2)
  1. MYSLEE-(ZOLPIDEM TARTRATE) - TABLET- 5 MG [Suspect]
     Indication: INSOMNIA
     Dosage: 5 MG ONCE ORAL
     Route: 048
     Dates: start: 20050323, end: 20050323
  2. CEFPIRAMIDE SODIUM [Concomitant]

REACTIONS (29)
  - ANAEMIA [None]
  - ASPARTATE AMINOTRANSFERASE INCREASED [None]
  - BLOOD BICARBONATE INCREASED [None]
  - BLOOD CREATINE PHOSPHOKINASE INCREASED [None]
  - BLOOD GLUCOSE INCREASED [None]
  - BLOOD LACTATE DEHYDROGENASE INCREASED [None]
  - BLOOD PH DECREASED [None]
  - BLOOD POTASSIUM DECREASED [None]
  - BLOOD PRESSURE DIASTOLIC DECREASED [None]
  - BLOOD PRESSURE INCREASED [None]
  - BLOOD SODIUM DECREASED [None]
  - BLOOD UREA INCREASED [None]
  - COMA [None]
  - DEPRESSED LEVEL OF CONSCIOUSNESS [None]
  - HAEMORRHAGE [None]
  - HYPOVENTILATION [None]
  - INFLAMMATION [None]
  - MONOCYTE COUNT DECREASED [None]
  - OXYGEN SATURATION DECREASED [None]
  - PCO2 INCREASED [None]
  - PLATELET COUNT DECREASED [None]
  - PO2 INCREASED [None]
  - PROTEIN TOTAL DECREASED [None]
  - PULMONARY HAEMORRHAGE [None]
  - PUPILLARY REFLEX IMPAIRED [None]
  - RESPIRATORY DEPRESSION [None]
  - UNRESPONSIVE TO PAIN STIMULI [None]
  - URINARY INCONTINENCE [None]
  - WHITE BLOOD CELL COUNT DECREASED [None]
